FAERS Safety Report 25588699 (Version 5)
Quarter: 2025Q4

REPORT INFORMATION
  Report Type: Spontaneous
  Country: US (occurrence: US)
  Receive Date: 20250722
  Receipt Date: 20251016
  Transmission Date: 20260118
  Serious: No
  Sender: BRISTOL-MYERS SQUIBB COMPANY
  Company Number: US-BRISTOL-MYERS SQUIBB COMPANY-2025-102040

PATIENT
  Age: 64 Year
  Sex: Female

DRUGS (3)
  1. ORENCIA [Suspect]
     Active Substance: ABATACEPT
     Indication: Rheumatoid arthritis
     Dates: start: 202407
  2. TYVASO DPI [Suspect]
     Active Substance: TREPROSTINIL
     Indication: Product used for unknown indication
     Dosage: TYVASO DPI MAINT KIT PWD
  3. TYVASO DPI [Suspect]
     Active Substance: TREPROSTINIL
     Dosage: TITRAT KIT POW, COMBINING THE TYVASO DPI 16MCG AND?32MCG CARTRIDGES FOR TOTAL DOSE OF 48MCG QID SINCE 10/09/25

REACTIONS (13)
  - Abdominal discomfort [Unknown]
  - Constipation [Unknown]
  - Muscle spasms [Unknown]
  - Headache [Unknown]
  - Abdominal pain upper [Unknown]
  - Chest pain [Unknown]
  - Fatigue [Unknown]
  - Peripheral swelling [Unknown]
  - Joint swelling [Unknown]
  - Productive cough [Unknown]
  - Dry mouth [Unknown]
  - Asthenia [Unknown]
  - Flatulence [Unknown]
